FAERS Safety Report 8183803-X (Version None)
Quarter: 2012Q1

REPORT INFORMATION
  Report Type: 
  Country: None (occurrence: None)
  Receive Date: 20120305
  Receipt Date: 20120220
  Transmission Date: 20120608
  Serious: Yes (Other)
  Sender: FDA-Public Use
  Company Number: US-MYLANLABS-2012S1004585

PATIENT

DRUGS (1)
  1. MELPHALAN HYDROCHLORIDE [Suspect]
     Indication: RETINOBLASTOMA
     Route: 013

REACTIONS (1)
  - CHOROIDAL DYSTROPHY [None]
